FAERS Safety Report 13055032 (Version 2)
Quarter: 2017Q1

REPORT INFORMATION
  Report Type: Report from Study
  Country: None (occurrence: US)
  Receive Date: 20161222
  Receipt Date: 20170102
  Transmission Date: 20170428
  Serious: Yes (Other)
  Sender: FDA-Public Use
  Company Number: US-ABBVIE-16K-163-1814525-00

PATIENT
  Sex: Female
  Weight: 98.06 kg

DRUGS (1)
  1. HUMIRA [Suspect]
     Active Substance: ADALIMUMAB
     Indication: PSORIASIS
     Route: 058
     Dates: start: 201506

REACTIONS (9)
  - Menstruation irregular [Recovered/Resolved]
  - Infertility female [Not Recovered/Not Resolved]
  - Disease susceptibility [Not Recovered/Not Resolved]
  - Menorrhagia [Recovered/Resolved]
  - Menorrhagia [Recovered/Resolved]
  - Precancerous cells present [Recovered/Resolved]
  - Menstruation irregular [Recovered/Resolved]
  - Rash papular [Not Recovered/Not Resolved]
  - Ovarian cyst [Unknown]

NARRATIVE: CASE EVENT DATE: 2015
